FAERS Safety Report 7830244-8 (Version None)
Quarter: 2011Q4

REPORT INFORMATION
  Report Type: 
  Country: None (occurrence: None)
  Receive Date: 20111021
  Receipt Date: 20111011
  Transmission Date: 20120403
  Serious: Yes (Other)
  Sender: FDA-Public Use
  Company Number: PHEH2011US06530

PATIENT
  Sex: Female

DRUGS (7)
  1. VIVELLE-DOT [Suspect]
     Dosage: 0.75 MG, FOR ABOUT 2 WEEKS
     Route: 062
  2. VIVELLE-DOT [Suspect]
     Dosage: 0.037 MG, FOR ABOUT 2 WEEKS
     Route: 062
  3. MYSOLINE [Concomitant]
     Dosage: 250 MG, A HALF IN MORNING AND A HALF IN THE AFTERNOON AND ONE FULL 250MG IN THE EVENING
  4. VIVELLE-DOT [Suspect]
     Dosage: 0.05 MG, FOR ABOUT 2 WEEKS
     Route: 062
  5. VIVELLE-DOT [Suspect]
     Dosage: 0.025 MG, FOR ABOUT 2 WEEKS
     Route: 062
  6. VITAMIN D [Concomitant]
  7. VIVELLE-DOT [Suspect]
     Dosage: 0.05 MG, FOR ABOUT 2 WEEKS
     Route: 062

REACTIONS (2)
  - THYROID DISORDER [None]
  - THYROID NEOPLASM [None]
